FAERS Safety Report 20925405 (Version 2)
Quarter: 2022Q2

REPORT INFORMATION
  Report Type: Report from Study
  Country: PL (occurrence: PL)
  Receive Date: 20220607
  Receipt Date: 20220615
  Transmission Date: 20220721
  Serious: Yes (Death)
  Sender: FDA-Public Use
  Company Number: PL-Merck Healthcare KGaA-9326259

PATIENT
  Sex: Male
  Weight: 64 kg

DRUGS (5)
  1. IRINOTECAN HYDROCHLORIDE [Suspect]
     Active Substance: IRINOTECAN HYDROCHLORIDE
     Indication: Colorectal cancer metastatic
     Dosage: 180 (UNSPECIFIED UNIT)
     Route: 042
     Dates: start: 20190830, end: 20201112
  2. FLUOROURACIL [Suspect]
     Active Substance: FLUOROURACIL
     Indication: Colorectal cancer metastatic
     Dosage: 1000 (UNSPECIFIED UNIT)
     Route: 042
     Dates: start: 20190830, end: 20201212
  3. CETUXIMAB [Suspect]
     Active Substance: CETUXIMAB
     Indication: Colorectal cancer metastatic
     Dosage: 500 MG/M2
     Route: 042
     Dates: start: 20190830
  4. CETUXIMAB [Suspect]
     Active Substance: CETUXIMAB
     Dosage: 500 MG/M2
     Route: 042
     Dates: start: 20201211, end: 20201211
  5. LEUCOVORIN [Suspect]
     Active Substance: LEUCOVORIN
     Indication: Colorectal cancer metastatic
     Dosage: 200 (UNSPECIFIED UNIT)
     Route: 042
     Dates: start: 20190830, end: 20201212

REACTIONS (1)
  - Death [Fatal]
